FAERS Safety Report 10143195 (Version 2)
Quarter: 2014Q2

REPORT INFORMATION
  Report Type: Spontaneous
  Country: TW (occurrence: TW)
  Receive Date: 20140430
  Receipt Date: 20140507
  Transmission Date: 20141212
  Serious: Yes (Hospitalization, Other)
  Sender: FDA-Public Use
  Company Number: TW-ELI_LILLY_AND_COMPANY-TW201404008217

PATIENT
  Age: 43 Year
  Sex: Female

DRUGS (6)
  1. GEMZAR [Suspect]
     Indication: BREAST CANCER METASTATIC
     Route: 042
  2. PACLITAXEL [Concomitant]
     Indication: BREAST CANCER METASTATIC
  3. 5-FLUOROURACIL [Concomitant]
     Indication: BREAST CANCER METASTATIC
  4. EPIRUBICIN [Concomitant]
     Indication: BREAST CANCER METASTATIC
  5. CYCLOPHOSPHAMIDE [Concomitant]
     Indication: BREAST CANCER METASTATIC
  6. ZOLEDRONIC ACID [Concomitant]
     Indication: METASTASES TO BONE

REACTIONS (3)
  - Haemolytic uraemic syndrome [Recovered/Resolved]
  - Chest pain [Recovered/Resolved]
  - Renal failure acute [Recovered/Resolved]
